FAERS Safety Report 5196081-0 (Version None)
Quarter: 2007Q1

REPORT INFORMATION
  Report Type: 
  Country: None (occurrence: None)
  Receive Date: 20070102
  Receipt Date: 20061227
  Transmission Date: 20070707
  Serious: Yes (Other)
  Sender: FDA-Public Use
  Company Number: BR-SHR-BR-2006-040046

PATIENT
  Age: 36 Year
  Sex: Female
  Weight: 54 kg

DRUGS (2)
  1. YASMIN [Suspect]
     Dosage: 1 TAB(S), UNK
     Route: 048
     Dates: start: 20061101, end: 20061201
  2. TYLENOL [Concomitant]

REACTIONS (2)
  - PHOTOPSIA [None]
  - VISUAL ACUITY REDUCED [None]
